FAERS Safety Report 22100492 (Version 1)
Quarter: 2023Q1

REPORT INFORMATION
  Report Type: Spontaneous
  Country: US (occurrence: US)
  Receive Date: 20230316
  Receipt Date: 20230316
  Transmission Date: 20230418
  Serious: Yes (Hospitalization, Other)
  Sender: FDA-Public Use
  Company Number: US-IHL-000013

PATIENT
  Age: 65 Year
  Sex: Female

DRUGS (1)
  1. NITROFURANTOIN [Suspect]
     Active Substance: NITROFURANTOIN
     Indication: Urinary tract infection
     Route: 065

REACTIONS (16)
  - Amyloidosis [Recovering/Resolving]
  - Diarrhoea [Unknown]
  - Asthenia [Unknown]
  - Weight decreased [Unknown]
  - Dizziness [Unknown]
  - Syncope [Unknown]
  - Bradycardia [Unknown]
  - Hypotension [Unknown]
  - Cardiac arrest [Unknown]
  - Left ventricular hypertrophy [Unknown]
  - Right ventricular hypertrophy [Unknown]
  - Pericardial effusion [Unknown]
  - Mental status changes [Unknown]
  - Urinary tract infection [Unknown]
  - Hypothermia [Unknown]
  - Clostridium difficile colitis [Unknown]
